FAERS Safety Report 6962302-4 (Version None)
Quarter: 2010Q3

REPORT INFORMATION
  Report Type: 
  Country: None (occurrence: None)
  Receive Date: 20100902
  Receipt Date: 20100823
  Transmission Date: 20110219
  Serious: Yes (Other)
  Sender: FDA-Public Use
  Company Number: US-JNJFOC-20100808070

PATIENT
  Sex: Male

DRUGS (5)
  1. PREZISTA [Suspect]
     Indication: HIV INFECTION
     Route: 048
     Dates: start: 20090101
  2. RITONAVIR [Suspect]
     Indication: HIV INFECTION
     Route: 048
  3. RALTEGRAVIR [Concomitant]
     Indication: HIV INFECTION
  4. COMBIVIR [Concomitant]
     Indication: HIV INFECTION
  5. FENOFIBRATE [Concomitant]
     Indication: HIV INFECTION

REACTIONS (1)
  - BLOOD CREATININE INCREASED [None]
